FAERS Safety Report 7807420-3 (Version None)
Quarter: 2011Q4

REPORT INFORMATION
  Report Type: 
  Country: None (occurrence: None)
  Receive Date: 20111011
  Receipt Date: 20111005
  Transmission Date: 20120403
  Serious: Yes (Other)
  Sender: FDA-Public Use
  Company Number: US-ALLERGAN-1113168US

PATIENT
  Age: 52 Year
  Sex: Male

DRUGS (1)
  1. BOTULINUM TOXIN TYPE A [Suspect]
     Indication: MUSCLE DISORDER
     Dosage: UNK
     Route: 030
     Dates: start: 20110823, end: 20110823

REACTIONS (8)
  - MUSCULAR WEAKNESS [None]
  - INFLUENZA [None]
  - MONOPLEGIA [None]
  - HEADACHE [None]
  - ELECTROMYOGRAM ABNORMAL [None]
  - NAUSEA [None]
  - NASOPHARYNGITIS [None]
  - MUSCLE ATROPHY [None]
